FAERS Safety Report 20089831 (Version 3)
Quarter: 2022Q1

REPORT INFORMATION
  Report Type: Spontaneous
  Country: US (occurrence: US)
  Receive Date: 20211119
  Receipt Date: 20220304
  Transmission Date: 20220423
  Serious: Yes (Hospitalization)
  Sender: FDA-Public Use
  Company Number: US-JNJFOC-20211133266

PATIENT
  Sex: Male

DRUGS (1)
  1. REMICADE [Suspect]
     Active Substance: INFLIXIMAB
     Indication: Inflammatory bowel disease
     Route: 042

REACTIONS (4)
  - Lymphadenitis fungal [Recovered/Resolved]
  - Groin abscess [Unknown]
  - Oral candidiasis [Recovered/Resolved]
  - Herpes simplex [Recovered/Resolved]
